FAERS Safety Report 13327486 (Version 1)
Quarter: 2017Q1

REPORT INFORMATION
  Report Type: Spontaneous
  Country: US (occurrence: US)
  Receive Date: 20170313
  Receipt Date: 20170313
  Transmission Date: 20170428
  Serious: No
  Sender: FDA-Public Use
  Company Number: US-JNJFOC-20170100231

PATIENT
  Age: 70 Year
  Sex: Female
  Weight: 86.18 kg

DRUGS (6)
  1. WOMENS ROGAINE UNSCENTED [Suspect]
     Active Substance: MINOXIDIL
     Route: 061
  2. LOSARTAN. [Concomitant]
     Active Substance: LOSARTAN
     Indication: HYPERTENSION
     Dosage: SINCE 30 YEARS
     Route: 065
  3. OMEGA 3 FISH OILS [Concomitant]
     Active Substance: OMEGA-3 FATTY ACIDS
     Indication: ROUTINE HEALTH MAINTENANCE
     Dosage: 1 CAPSULE, SINCE 15-20YEARS
     Route: 065
  4. CALCIUM [Concomitant]
     Active Substance: CALCIUM
     Indication: NUTRITIONAL SUPPLEMENTATION
     Dosage: SINCE 15-20 YEARS
     Route: 065
  5. CHLORTHALIDONE. [Concomitant]
     Active Substance: CHLORTHALIDONE
     Indication: HYPERTENSION
     Dosage: 25M/1 TIMES PER DAY, SINCE 5-8YEARS
     Route: 065
  6. WOMENS ROGAINE UNSCENTED [Suspect]
     Active Substance: MINOXIDIL
     Indication: ALOPECIA
     Dosage: 1 CUPFUL
     Route: 061
     Dates: start: 201511, end: 20161231

REACTIONS (7)
  - Skin irritation [Unknown]
  - Erythema [Recovered/Resolved]
  - Skin burning sensation [Recovered/Resolved]
  - Overdose [Unknown]
  - Drug administration error [Unknown]
  - Blister [Recovered/Resolved]
  - Pain [Unknown]

NARRATIVE: CASE EVENT DATE: 201511
